FAERS Safety Report 12228370 (Version 2)
Quarter: 2016Q2

REPORT INFORMATION
  Report Type: Spontaneous
  Country: US (occurrence: US)
  Receive Date: 20160401
  Receipt Date: 20160422
  Transmission Date: 20160815
  Serious: No
  Sender: FDA-Public Use
  Company Number: US-BAYER-2016-062220

PATIENT
  Age: 71 Year
  Sex: Female

DRUGS (2)
  1. COLACE [Concomitant]
     Active Substance: DOCUSATE SODIUM
     Dosage: UNK
  2. MIRALAX [Suspect]
     Active Substance: POLYETHYLENE GLYCOL 3350
     Indication: LAXATIVE SUPPORTIVE CARE
     Dosage: 1 DF, QD
     Route: 048
     Dates: start: 20160329

REACTIONS (3)
  - Nausea [Not Recovered/Not Resolved]
  - Product use issue [None]
  - Product use issue [None]

NARRATIVE: CASE EVENT DATE: 2016
